FAERS Safety Report 22327554 (Version 1)
Quarter: 2023Q2

REPORT INFORMATION
  Report Type: Spontaneous
  Country: US (occurrence: US)
  Receive Date: 20230516
  Receipt Date: 20230516
  Transmission Date: 20230721
  Serious: No
  Sender: FDA-Public Use
  Company Number: US-RADIUS HEALTH INC.-2022US005241

PATIENT
  Age: 53 Year
  Sex: Female

DRUGS (2)
  1. TYMLOS [Suspect]
     Active Substance: ABALOPARATIDE
     Indication: Osteoporosis postmenopausal
     Dosage: 80 MICROGRAM, QD
     Route: 058
     Dates: start: 20221024, end: 20221031
  2. TYMLOS [Suspect]
     Active Substance: ABALOPARATIDE
     Indication: Spinal compression fracture

REACTIONS (4)
  - Pain in jaw [Unknown]
  - Toothache [Unknown]
  - Thirst [Unknown]
  - Bone pain [Unknown]

NARRATIVE: CASE EVENT DATE: 20221025
